FAERS Safety Report 18252305 (Version 1)
Quarter: 2020Q3

REPORT INFORMATION
  Report Type: Spontaneous
  Country: US (occurrence: US)
  Receive Date: 20200910
  Receipt Date: 20200910
  Transmission Date: 20201103
  Serious: No
  Sender: FDA-Public Use
  Company Number: US-FARMAPROD-202006-0779

PATIENT
  Age: 81 Year
  Sex: Female

DRUGS (5)
  1. ASPIRIN. [Concomitant]
     Active Substance: ASPIRIN
  2. DILTIAZEM. [Concomitant]
     Active Substance: DILTIAZEM
     Dosage: EXTENDED?RELEASE
  3. NEXIUM [Concomitant]
     Active Substance: ESOMEPRAZOLE MAGNESIUM
  4. OXERVATE [Suspect]
     Active Substance: CENEGERMIN-BKBJ
     Indication: NEUROTROPHIC KERATOPATHY
     Route: 047
     Dates: start: 20200526
  5. ALLOPURINOL. [Concomitant]
     Active Substance: ALLOPURINOL

REACTIONS (3)
  - Eye pain [Unknown]
  - Product use issue [Unknown]
  - Eyelid pain [Unknown]

NARRATIVE: CASE EVENT DATE: 20200601
